FAERS Safety Report 13587967 (Version 2)
Quarter: 2017Q4

REPORT INFORMATION
  Report Type: Spontaneous
  Country: US (occurrence: US)
  Receive Date: 20170527
  Receipt Date: 20171025
  Transmission Date: 20180320
  Serious: Yes (Hospitalization, Other)
  Sender: FDA-Public Use
  Company Number: US-DSJP-DSU-2017-116008

PATIENT

DRUGS (2)
  1. TRIBENZOR [Suspect]
     Active Substance: AMLODIPINE BESYLATE\HYDROCHLOROTHIAZIDE\OLMESARTAN MEDOXOMIL
     Indication: PRODUCT USED FOR UNKNOWN INDICATION
     Dosage: UNK
     Dates: start: 201307
  2. BENICAR HCT [Suspect]
     Active Substance: HYDROCHLOROTHIAZIDE\OLMESARTAN MEDOXOMIL
     Indication: PRODUCT USED FOR UNKNOWN INDICATION
     Dosage: UNK
     Dates: start: 201307

REACTIONS (15)
  - Pancreatitis acute [Unknown]
  - Confusional state [Unknown]
  - Peripheral swelling [Unknown]
  - Insomnia [Unknown]
  - Malabsorption [Unknown]
  - Myalgia [Unknown]
  - Alopecia [Unknown]
  - Atrial fibrillation [Unknown]
  - Hypoglycaemia [Unknown]
  - Dyspepsia [Unknown]
  - Haemorrhoids [Unknown]
  - Dizziness [Unknown]
  - Acute kidney injury [Unknown]
  - Anxiety [Unknown]
  - Hypotension [Unknown]
